FAERS Safety Report 12549782 (Version 3)
Quarter: 2016Q4

REPORT INFORMATION
  Report Type: Spontaneous
  Country: US (occurrence: US)
  Receive Date: 20160712
  Receipt Date: 20161018
  Transmission Date: 20170207
  Serious: Yes (Other)
  Sender: FDA-Public Use
  Company Number: US-INCYTE CORPORATION-2016IN004074

PATIENT
  Sex: Male

DRUGS (4)
  1. ASPIRIN                            /00002701/ [Concomitant]
     Active Substance: ASPIRIN
     Indication: PRODUCT USED FOR UNKNOWN INDICATION
  2. JAKAFI [Suspect]
     Active Substance: RUXOLITINIB
     Indication: MYELOFIBROSIS
     Dosage: 15 MG, BID
     Route: 048
     Dates: start: 20160613
  3. VITAMIN D                          /00107901/ [Concomitant]
     Active Substance: ERGOCALCIFEROL
     Indication: PRODUCT USED FOR UNKNOWN INDICATION
  4. XARELTO [Concomitant]
     Active Substance: RIVAROXABAN
     Indication: THROMBOSIS
     Dosage: UNK
     Dates: start: 201607

REACTIONS (10)
  - Peripheral swelling [Unknown]
  - Micturition disorder [Unknown]
  - Rash [Unknown]
  - Decreased appetite [Unknown]
  - Erythema [Unknown]
  - Thrombosis [Unknown]
  - White blood cell count decreased [Unknown]
  - Depression [Unknown]
  - Urine odour abnormal [Unknown]
  - Contusion [Unknown]

NARRATIVE: CASE EVENT DATE: 2016
